FAERS Safety Report 8744266 (Version 2)
Quarter: 2013Q4

REPORT INFORMATION
  Report Type: Spontaneous
  Country: US (occurrence: US)
  Receive Date: 20120824
  Receipt Date: 20131101
  Transmission Date: 20140711
  Serious: No
  Sender: FDA-Public Use
  Company Number: US-009507513-1207USA002003

PATIENT
  Sex: Male

DRUGS (2)
  1. ZEGERID OTC CAPSULES [Suspect]
     Indication: PRODUCT USED FOR UNKNOWN INDICATION
     Dosage: 20 MG, BID
     Route: 048
     Dates: start: 201202
  2. ZEGERID OTC CAPSULES [Suspect]
     Indication: MEDICAL OBSERVATION

REACTIONS (7)
  - Chest pain [Unknown]
  - Renal disorder [Unknown]
  - Musculoskeletal pain [Unknown]
  - Pain in extremity [Unknown]
  - Neck pain [Unknown]
  - Prescribed overdose [Unknown]
  - Inappropriate schedule of drug administration [Unknown]
